FAERS Safety Report 8663589 (Version 7)
Quarter: 2012Q4

REPORT INFORMATION
  Report Type: 
  Country: CA (occurrence: CA)
  Receive Date: 20120713
  Receipt Date: 20121214
  Transmission Date: 20130627
  Serious: Yes (Life-Threatening, Hospitalization, Other)
  Sender: FDA-Public Use
  Company Number: PHHO2012CA010352

PATIENT
  Age: 64 Year
  Sex: Female
  Weight: 79.4 kg

DRUGS (14)
  1. BLINDED AFINITOR [Suspect]
     Indication: DIFFUSE LARGE B-CELL LYMPHOMA
     Dosage: code not broken
     Route: 048
     Dates: start: 20111024, end: 20120711
  2. BLINDED NO TREATMENT RECEIVED [Suspect]
     Indication: DIFFUSE LARGE B-CELL LYMPHOMA
     Dosage: code not broken
     Route: 048
     Dates: start: 20111024, end: 20120711
  3. BLINDED PLACEBO [Suspect]
     Indication: DIFFUSE LARGE B-CELL LYMPHOMA
     Dosage: code not broken
     Route: 048
     Dates: start: 20111024, end: 20120711
  4. BLINDED AFINITOR [Suspect]
     Dosage: code not broken
     Route: 048
     Dates: start: 20120719, end: 20120801
  5. BLINDED NO TREATMENT RECEIVED [Suspect]
     Dosage: code not broken
     Route: 048
     Dates: start: 20120719, end: 20120801
  6. BLINDED PLACEBO [Suspect]
     Dosage: code not broken
     Route: 048
     Dates: start: 20120719, end: 20120801
  7. CARBAMAZEPINE [Suspect]
     Indication: CONVULSION
     Dosage: 200 mg, TID
     Dates: start: 2001
  8. LIPITOR [Suspect]
     Indication: HYPERCHOLESTEROLAEMIA
     Dosage: 40 mg, QD
     Route: 048
     Dates: start: 2001
  9. LIPITOR [Suspect]
     Indication: HYPERTRIGLYCERIDAEMIA
  10. INSULIN [Suspect]
     Indication: DIABETES MELLITUS
     Dosage: 20 uam 4 upm
     Dates: start: 200610
  11. LEVOTHYROXINE [Suspect]
     Indication: HYPOTHYROIDISM
     Dosage: 150 mg qpm
     Route: 065
     Dates: start: 2008
  12. WELLBUTRIN [Suspect]
     Indication: DEPRESSION
     Dosage: 150 mg qpm
     Route: 065
     Dates: start: 2008
  13. CYMBALTA [Suspect]
     Indication: DEPRESSION
     Dosage: UNK
     Dates: start: 20120210
  14. TRAZODONE [Suspect]
     Indication: DEPRESSION
     Dosage: 100 mg, QHS
     Route: 065
     Dates: start: 2008

REACTIONS (2)
  - Sick sinus syndrome [Recovered/Resolved]
  - Implant site infection [Recovered/Resolved]
